FAERS Safety Report 25039690 (Version 1)
Quarter: 2025Q1

REPORT INFORMATION
  Report Type: Spontaneous
  Country: US (occurrence: US)
  Receive Date: 20250305
  Receipt Date: 20250305
  Transmission Date: 20250408
  Serious: No
  Sender: SANDOZ
  Company Number: US-SANDOZ-SDZ2023US077357

PATIENT
  Sex: Male
  Weight: 126.55 kg

DRUGS (1)
  1. OMNITROPE [Suspect]
     Active Substance: SOMATROPIN
     Indication: Hypopituitarism
     Dosage: 0.4 MG, QD(ONCE DAILY)
     Route: 058
     Dates: start: 20181220

REACTIONS (4)
  - Weight increased [Unknown]
  - Dyspnoea [Unknown]
  - Nasal congestion [Unknown]
  - Nasopharyngitis [Unknown]
